FAERS Safety Report 15990461 (Version 1)
Quarter: 2019Q1

REPORT INFORMATION
  Report Type: Spontaneous
  Country: US (occurrence: US)
  Receive Date: 20190221
  Receipt Date: 20190221
  Transmission Date: 20190418
  Serious: No
  Sender: FDA-Public Use
  Company Number: US-BAYER-2019-035586

PATIENT

DRUGS (2)
  1. ALEVE [Suspect]
     Active Substance: NAPROXEN SODIUM
  2. BAYER ASPIRIN [Suspect]
     Active Substance: ASPIRIN

REACTIONS (4)
  - Abdominal pain upper [Unknown]
  - Therapeutic response unexpected [Unknown]
  - Gastric disorder [Unknown]
  - Drug intolerance [Unknown]
